FAERS Safety Report 8392604-9 (Version None)
Quarter: 2012Q2

REPORT INFORMATION
  Report Type: 
  Country: None (occurrence: None)
  Receive Date: 20120529
  Receipt Date: 20120523
  Transmission Date: 20120825
  Serious: Yes (Other)
  Sender: FDA-Public Use
  Company Number: BR-BAYER-2012-051507

PATIENT
  Age: 57 Year
  Sex: Female

DRUGS (5)
  1. MANTIDAN [Concomitant]
     Indication: PAIN IN EXTREMITY
  2. MANTIDAN [Concomitant]
     Indication: PARAESTHESIA
     Dosage: UNK
     Route: 048
     Dates: start: 20020101, end: 20120101
  3. CLONAZEPAM [Concomitant]
     Indication: SLEEP DISORDER THERAPY
     Dosage: 8 GTT, QD
     Route: 048
     Dates: start: 20070101
  4. MANTIDAN [Concomitant]
     Indication: GAIT DISTURBANCE
  5. BETASERON [Suspect]
     Indication: RELAPSING-REMITTING MULTIPLE SCLEROSIS
     Dosage: 1 ML, QOD
     Route: 058
     Dates: start: 20070101

REACTIONS (4)
  - FATIGUE [None]
  - MALAISE [None]
  - TOXICITY TO VARIOUS AGENTS [None]
  - ASTHENIA [None]
